FAERS Safety Report 8624812 (Version 3)
Quarter: 2014Q1

REPORT INFORMATION
  Report Type: Spontaneous
  Country: DE (occurrence: DE)
  Receive Date: 20120620
  Receipt Date: 20140214
  Transmission Date: 20141002
  Serious: Yes (Death, Other)
  Sender: FDA-Public Use
  Company Number: DE-ROCHE-1079596

PATIENT
  Age: 20 Year
  Sex: Male
  Weight: 85.08 kg

DRUGS (12)
  1. XOLAIR [Suspect]
     Indication: ASTHMA
     Route: 058
     Dates: start: 201006
  2. XOLAIR [Suspect]
     Route: 058
     Dates: start: 20120530
  3. XOLAIR [Suspect]
     Route: 058
     Dates: start: 20110503
  4. FLUTIDE DISKUS [Concomitant]
     Route: 065
  5. OXIS [Concomitant]
     Route: 065
  6. SINGULAIR [Concomitant]
     Route: 065
  7. SALBUTAMOL SULFATE [Concomitant]
     Route: 065
  8. ENALAPRIL [Concomitant]
     Route: 065
  9. IBUPROFEN [Concomitant]
     Route: 065
  10. VIANI [Concomitant]
  11. XUSAL [Concomitant]
  12. ASS [Concomitant]
     Route: 065

REACTIONS (11)
  - Right ventricular failure [Fatal]
  - Status asthmaticus [Fatal]
  - Bundle branch block right [Unknown]
  - Haemorrhoids [Unknown]
  - Metabolic syndrome [Unknown]
  - Gamma-glutamyltransferase increased [Not Recovered/Not Resolved]
  - Blood cholesterol increased [Unknown]
  - Blood alkaline phosphatase increased [Unknown]
  - Forced expiratory volume decreased [Recovered/Resolved]
  - Incorrect route of drug administration [Unknown]
  - Fatigue [Unknown]
